FAERS Safety Report 5375766-7 (Version None)
Quarter: 2007Q2

REPORT INFORMATION
  Report Type: 
  Country: None (occurrence: None)
  Receive Date: 20070628
  Receipt Date: 20070618
  Transmission Date: 20071010
  Serious: Yes (Other)
  Sender: FDA-Public Use
  Company Number: 235800K06USA

PATIENT
  Age: 38 Year
  Sex: Male
  Weight: 108.8633 kg

DRUGS (6)
  1. REBIF [Suspect]
     Indication: MULTIPLE SCLEROSIS
     Dosage: 44 MCG, 3 IN 1 WEEKS, SUBCUTANEOUS
     Route: 058
     Dates: start: 20060417
  2. AMITRIPTYLINE HCL [Concomitant]
  3. TYLENOL (COTYLENOL) [Concomitant]
  4. ALEVE [Concomitant]
  5. IBUPROFEN [Concomitant]
  6. TOPAMAX [Concomitant]

REACTIONS (5)
  - CONFUSIONAL STATE [None]
  - CONVULSION [None]
  - FALL [None]
  - HEAT EXHAUSTION [None]
  - SYNCOPE VASOVAGAL [None]
